FAERS Safety Report 8422879-9 (Version None)
Quarter: 2012Q2

REPORT INFORMATION
  Report Type: 
  Country: None (occurrence: None)
  Receive Date: 20120608
  Receipt Date: 20120531
  Transmission Date: 20120825
  Serious: Yes (Hospitalization)
  Sender: FDA-Public Use
  Company Number: US-GLAXOSMITHKLINE-A0887638A

PATIENT
  Age: 79 Year
  Sex: Male
  Weight: 133.2 kg

DRUGS (1)
  1. AVANDIA [Suspect]
     Indication: DIABETES MELLITUS
     Dosage: 8MG PER DAY
     Route: 048
     Dates: start: 20030307, end: 20090717

REACTIONS (2)
  - CARDIAC FAILURE CONGESTIVE [None]
  - AORTIC VALVE REPLACEMENT [None]
